FAERS Safety Report 4299143-5 (Version None)
Quarter: 2004Q1

REPORT INFORMATION
  Report Type: 
  Country: None (occurrence: None)
  Receive Date: 20040217
  Receipt Date: 20040209
  Transmission Date: 20041129
  Serious: Yes (Other)
  Sender: FDA-Public Use
  Company Number: HQ8689721NOV2001

PATIENT
  Age: 46 Year
  Sex: Female

DRUGS (10)
  1. DIMETAPP [Suspect]
     Indication: SINUS CONGESTION
     Dosage: 2 DOSES TAKEN 1 TIME EVERY 6 HOURS, ORAL
     Route: 048
  2. ADVIL COLD AND SINUS [Suspect]
     Indication: HEADACHE
     Dosage: 2 DOSES TAKEN 1 TIME EVERY 6 HOURS, ORAL
     Route: 048
  3. TAVIST D [Suspect]
     Dosage: ORAL
     Route: 048
  4. UNSPECIFIED ANTIDEPRESSANT (UNSPECIFIED ANTIDEPRESSANT) [Concomitant]
  5. PREMARIN [Concomitant]
  6. TOPROL-XL [Concomitant]
  7. NIFEDIPINE [Concomitant]
  8. HYDROCHLOROTHIAZIDE [Concomitant]
  9. TYLENOL [Concomitant]
  10. TYLENOL [Concomitant]

REACTIONS (6)
  - ASTHENIA [None]
  - CALCINOSIS [None]
  - CAROTID ARTERY STENOSIS [None]
  - CEREBRAL HAEMORRHAGE [None]
  - CEREBRAL INFARCTION [None]
  - DYSARTHRIA [None]
